FAERS Safety Report 6836331-5 (Version None)
Quarter: 2010Q3

REPORT INFORMATION
  Report Type: 
  Country: None (occurrence: None)
  Receive Date: 20100713
  Receipt Date: 20100708
  Transmission Date: 20110219
  Serious: Yes (Life-Threatening, Disabling, Other)
  Sender: FDA-Public Use
  Company Number: US-MERCK-1007USA00925

PATIENT
  Age: 50 Year
  Sex: Male

DRUGS (4)
  1. ZOCOR [Suspect]
     Indication: BLOOD CHOLESTEROL
     Route: 048
     Dates: start: 20100610, end: 20100620
  2. ANDROGEL [Concomitant]
     Route: 065
  3. NEXIUM [Concomitant]
     Route: 065
  4. CORTICOSTEROIDS (UNSPECIFIED) [Concomitant]
     Route: 065

REACTIONS (4)
  - ASTHMA [None]
  - BACK DISORDER [None]
  - COUGH [None]
  - HEADACHE [None]
